FAERS Safety Report 4837473-6 (Version None)
Quarter: 2005Q4

REPORT INFORMATION
  Report Type: 
  Country: None (occurrence: None)
  Receive Date: 20051128
  Receipt Date: 20041216
  Transmission Date: 20060501
  Serious: Yes (Hospitalization)
  Sender: FDA-Public Use
  Company Number: AU-SANOFI-SYNTHELABO-F01200403928

PATIENT
  Sex: Female

DRUGS (7)
  1. OXALIPLATIN [Suspect]
     Indication: COLORECTAL CANCER METASTATIC
     Route: 042
     Dates: start: 20041207, end: 20041207
  2. CAPECITABINE [Suspect]
     Dosage: 2150 MG BID GIVEN FROM DAYS 1 TO 14 EVERY 3 WEEKS
     Route: 048
     Dates: start: 20041208, end: 20041208
  3. BEVACIZUMAB OR PLACEBO [Suspect]
     Route: 042
     Dates: start: 20041207, end: 20041207
  4. PRAVACHOL [Concomitant]
     Dosage: UNK
     Route: 065
     Dates: start: 19990915
  5. ZOFRAN [Concomitant]
     Dosage: UNK
     Route: 065
     Dates: start: 20041207, end: 20041207
  6. DEXAMETHASONE [Concomitant]
     Dosage: UNK
     Route: 065
     Dates: start: 20041207, end: 20041207
  7. MAXOLON [Concomitant]
     Dosage: UNK
     Route: 065
     Dates: start: 20041207, end: 20041207

REACTIONS (2)
  - DYSAESTHESIA PHARYNX [None]
  - LARYNGOSPASM [None]
